FAERS Safety Report 15516234 (Version 1)
Quarter: 2018Q4

REPORT INFORMATION
  Report Type: Spontaneous
  Country: US (occurrence: US)
  Receive Date: 20181017
  Receipt Date: 20181017
  Transmission Date: 20190205
  Serious: No
  Sender: FDA-Public Use
  Company Number: US-ADAREPHARM-2017-US-000008

PATIENT
  Sex: Female

DRUGS (1)
  1. KCL [Suspect]
     Active Substance: POTASSIUM CHLORIDE
     Dosage: NDC NUMBER: 62037-0999-05

REACTIONS (2)
  - Lip pain [Unknown]
  - Lip swelling [Unknown]
